FAERS Safety Report 8191029-9 (Version None)
Quarter: 2012Q1

REPORT INFORMATION
  Report Type: 
  Country: None (occurrence: None)
  Receive Date: 20120305
  Receipt Date: 20120223
  Transmission Date: 20120608
  Serious: Yes (Hospitalization)
  Sender: FDA-Public Use
  Company Number: 2012SP003615

PATIENT
  Sex: Female

DRUGS (1)
  1. NUVARING [Suspect]
     Indication: CONTRACEPTION
     Dosage: 1 DF;QD;
     Dates: start: 20110701, end: 20120113

REACTIONS (5)
  - VARICOSE VEIN [None]
  - PAIN IN EXTREMITY [None]
  - MUSCLE CONTRACTURE [None]
  - MUSCLE SPASMS [None]
  - POLYNEUROPATHY [None]
